FAERS Safety Report 17489792 (Version 1)
Quarter: 2020Q1

REPORT INFORMATION
  Report Type: Spontaneous
  Country: US (occurrence: US)
  Receive Date: 20200303
  Receipt Date: 20200303
  Transmission Date: 20200409
  Serious: No
  Sender: FDA-Public Use
  Company Number: US-AKORN PHARMACEUTICALS-2018AKN02009

PATIENT
  Age: 20 Year
  Sex: Male
  Weight: 70.3 kg

DRUGS (1)
  1. MYORISAN [Suspect]
     Active Substance: ISOTRETINOIN
     Indication: ACNE
     Dosage: 30 MG, 1X/DAY
     Route: 048
     Dates: start: 20181108, end: 20191116

REACTIONS (10)
  - Diarrhoea [Recovered/Resolved]
  - Change of bowel habit [Recovered/Resolved]
  - Faeces soft [Not Recovered/Not Resolved]
  - Nausea [Recovered/Resolved]
  - Back pain [Recovered/Resolved]
  - Faeces discoloured [Recovering/Resolving]
  - Headache [Recovered/Resolved]
  - Chromaturia [Recovered/Resolved]
  - Chest discomfort [Recovered/Resolved]
  - Off label use [Recovered/Resolved]

NARRATIVE: CASE EVENT DATE: 20181108
